FAERS Safety Report 19114193 (Version 5)
Quarter: 2021Q2

REPORT INFORMATION
  Report Type: Report from Study
  Country: GB (occurrence: GB)
  Receive Date: 20210408
  Receipt Date: 20210525
  Transmission Date: 20210717
  Serious: Yes (Death, Hospitalization)
  Sender: FDA-Public Use
  Company Number: GB-KARYOPHARM-2021KPT000358

PATIENT
  Age: 80 Year
  Sex: Male

DRUGS (2)
  1. SELINEXOR [Suspect]
     Active Substance: SELINEXOR
     Indication: PLASMA CELL MYELOMA
     Dosage: 80 MG, 2X/WEEK
     Route: 048
     Dates: start: 20210301, end: 20210329
  2. DEXAMETHASONE. [Concomitant]
     Active Substance: DEXAMETHASONE
     Indication: PLASMA CELL MYELOMA
     Dosage: UNK
     Dates: start: 20210301

REACTIONS (5)
  - Anaemia [Not Recovered/Not Resolved]
  - Ileus [Unknown]
  - Asthenia [Unknown]
  - Plasma cell myeloma [Fatal]
  - Thrombocytopenia [Not Recovered/Not Resolved]

NARRATIVE: CASE EVENT DATE: 202103
